FAERS Safety Report 4697780-7 (Version None)
Quarter: 2005Q2

REPORT INFORMATION
  Report Type: 
  Country: None (occurrence: None)
  Receive Date: 20050621
  Receipt Date: 20050614
  Transmission Date: 20051028
  Serious: Yes (Disabling)
  Sender: FDA-Public Use
  Company Number: 005009

PATIENT
  Age: 67 Year
  Sex: Female

DRUGS (6)
  1. ZIAC [Suspect]
     Indication: HYPERTENSION
     Dosage: 1.00 TABLET, QD, ORAL
     Route: 048
     Dates: start: 20040913, end: 20050401
  2. LEVAQUIN [Concomitant]
  3. CEPHALEXIN [Concomitant]
  4. LORAZEPAM [Concomitant]
  5. ACTONEL [Concomitant]
  6. PSEUDOVENT [Concomitant]

REACTIONS (2)
  - DEAFNESS NEUROSENSORY [None]
  - TINNITUS [None]
